FAERS Safety Report 17215947 (Version 3)
Quarter: 2020Q1

REPORT INFORMATION
  Report Type: Spontaneous
  Country: US (occurrence: US)
  Receive Date: 20191230
  Receipt Date: 20200302
  Transmission Date: 20200409
  Serious: No
  Sender: FDA-Public Use
  Company Number: US-SA-2019SA272217

PATIENT
  Age: 54 Year
  Sex: Female
  Weight: 101.5 kg

DRUGS (3)
  1. DUPIXENT [Suspect]
     Active Substance: DUPILUMAB
     Dosage: 300 MG, QOW
     Route: 058
     Dates: start: 20190924
  2. DUPIXENT [Suspect]
     Active Substance: DUPILUMAB
     Indication: DERMATITIS ATOPIC
     Dosage: 600 MG, 1X
     Route: 058
     Dates: start: 201909, end: 201909
  3. PETROLEUM JELLY [Concomitant]
     Active Substance: PETROLATUM

REACTIONS (7)
  - Pruritus [Unknown]
  - Eczema [Recovering/Resolving]
  - Headache [Unknown]
  - Scratch [Recovering/Resolving]
  - Skin burning sensation [Not Recovered/Not Resolved]
  - Product dose omission [Unknown]
  - Dizziness [Unknown]

NARRATIVE: CASE EVENT DATE: 201912
